FAERS Safety Report 9296631 (Version 3)
Quarter: 2013Q2

REPORT INFORMATION
  Report Type: Report from Study
  Country: BR (occurrence: BR)
  Receive Date: 20130517
  Receipt Date: 20130625
  Transmission Date: 20140414
  Serious: Yes (Other)
  Sender: FDA-Public Use
  Company Number: PHHY2013BR048849

PATIENT
  Age: 7 Year
  Sex: Male
  Weight: 29.9 kg

DRUGS (1)
  1. RITALIN LA [Suspect]
     Indication: AGITATION
     Dosage: 1 DF, QD
     Route: 048
     Dates: start: 20121101

REACTIONS (4)
  - Asthma [Not Recovered/Not Resolved]
  - Movement disorder [Not Recovered/Not Resolved]
  - Agitation [Not Recovered/Not Resolved]
  - Drug ineffective [Not Recovered/Not Resolved]
